FAERS Safety Report 21387756 (Version 1)
Quarter: 2022Q3

REPORT INFORMATION
  Report Type: Spontaneous
  Country: US (occurrence: None)
  Receive Date: 20220926
  Receipt Date: 20220926
  Transmission Date: 20221026
  Serious: No
  Sender: FDA-Public Use
  Company Number: None

PATIENT
  Age: 67 Year
  Sex: Male

DRUGS (1)
  1. TALTZ [Suspect]
     Active Substance: IXEKIZUMAB
     Indication: Psoriasis
     Dosage: 80 MG EVERY 4 WEEKS SC
     Route: 058
     Dates: start: 201710

REACTIONS (4)
  - Device malfunction [None]
  - Device leakage [None]
  - Needle issue [None]
  - Therapy interrupted [None]

NARRATIVE: CASE EVENT DATE: 20220907
